FAERS Safety Report 6025475-6 (Version None)
Quarter: 2008Q4

REPORT INFORMATION
  Report Type: 
  Country: None (occurrence: None)
  Receive Date: 20081229
  Receipt Date: 20081229
  Transmission Date: 20090506
  Serious: Yes (Life-Threatening, Hospitalization, Other)
  Sender: FDA-Public Use
  Company Number: None

PATIENT
  Age: 27 Year
  Sex: Female
  Weight: 68.0396 kg

DRUGS (2)
  1. PROZAC [Suspect]
     Indication: ANXIETY
     Dosage: 40MG DAILY ONCE PO
     Route: 048
     Dates: start: 20081001, end: 20081204
  2. PROZAC [Suspect]
     Indication: DEPRESSION
     Dosage: 40MG DAILY ONCE PO
     Route: 048
     Dates: start: 20081001, end: 20081204

REACTIONS (8)
  - ABNORMAL BEHAVIOUR [None]
  - ALCOHOL USE [None]
  - ANXIETY [None]
  - CONDITION AGGRAVATED [None]
  - DRUG EXPOSURE DURING PREGNANCY [None]
  - FEELING GUILTY [None]
  - OVERDOSE [None]
  - SUICIDE ATTEMPT [None]
